FAERS Safety Report 13598154 (Version 2)
Quarter: 2017Q2

REPORT INFORMATION
  Report Type: Other
  Country: IT (occurrence: IT)
  Receive Date: 20170531
  Receipt Date: 20170613
  Transmission Date: 20170830
  Serious: Yes (Hospitalization, Other)
  Sender: FDA-Public Use
  Company Number: IT-APOTEX-2017AP012449

PATIENT
  Age: 28 Year
  Sex: Female

DRUGS (9)
  1. FLUOXETINE [Suspect]
     Active Substance: FLUOXETINE HYDROCHLORIDE
     Indication: SUICIDE ATTEMPT
     Dosage: 20 MG, TOTAL
     Route: 048
     Dates: start: 20170426, end: 20170426
  2. XANAX [Suspect]
     Active Substance: ALPRAZOLAM
     Dosage: 15 MG, TOTAL (1 MG TABLETS)
     Route: 048
     Dates: start: 20170426, end: 20170426
  3. CETIRIZINE [Suspect]
     Active Substance: CETIRIZINE HYDROCHLORIDE
     Indication: SUICIDE ATTEMPT
     Dosage: 100 MG, TOTAL
     Route: 048
     Dates: start: 20170426, end: 20170426
  4. CETIRIZINE [Suspect]
     Active Substance: CETIRIZINE HYDROCHLORIDE
     Dosage: 1 DF, TOTAL
     Route: 048
  5. TACHIPIRINA [Suspect]
     Active Substance: ACETAMINOPHEN
     Indication: SUICIDE ATTEMPT
     Dosage: 8 G, TOTAL
     Route: 048
     Dates: start: 20170426, end: 20170426
  6. TACHIPIRINA [Suspect]
     Active Substance: ACETAMINOPHEN
     Dosage: 8 DF, TOTAL
     Route: 048
  7. XANAX [Suspect]
     Active Substance: ALPRAZOLAM
     Indication: SUICIDE ATTEMPT
     Dosage: 7.5 MG, TOTAL (0.5 MG TABLETS)
     Route: 048
     Dates: start: 20170426, end: 20170426
  8. ACTIGRIP [Suspect]
     Active Substance: ACETAMINOPHEN\PSEUDOEPHEDRINE HYDROCHLORIDE\TRIPROLIDINE HYDROCHLORIDE
     Indication: SUICIDE ATTEMPT
     Dosage: 12 DF, TOTAL
     Route: 048
     Dates: start: 20170426, end: 20170426
  9. XANAX [Suspect]
     Active Substance: ALPRAZOLAM
     Dosage: 15 DF, TOTAL
     Route: 048

REACTIONS (3)
  - Drug use disorder [Recovering/Resolving]
  - Overdose [Recovering/Resolving]
  - Intentional self-injury [Unknown]

NARRATIVE: CASE EVENT DATE: 20170426
